FAERS Safety Report 11866549 (Version 1)
Quarter: 2015Q4

REPORT INFORMATION
  Report Type: Spontaneous
  Country: US (occurrence: US)
  Receive Date: 20151224
  Receipt Date: 20151224
  Transmission Date: 20160305
  Serious: No
  Sender: FDA-Public Use
  Company Number: US-HORIZON-PEN-0251-2015

PATIENT
  Age: 66 Year
  Sex: Male

DRUGS (5)
  1. PREVACID [Concomitant]
     Active Substance: LANSOPRAZOLE
  2. CELEBREX [Concomitant]
     Active Substance: CELECOXIB
  3. VOLTAREN [Concomitant]
     Active Substance: DICLOFENAC SODIUM
  4. PENNSAID [Suspect]
     Active Substance: DICLOFENAC SODIUM
     Indication: PAIN IN EXTREMITY
     Dosage: 2 PUMPS BID ON BOTH FEET
  5. LIPITOR [Concomitant]
     Active Substance: ATORVASTATIN CALCIUM

REACTIONS (2)
  - Device defective [Unknown]
  - Off label use [Unknown]
